FAERS Safety Report 5088477-2 (Version None)
Quarter: 2006Q3

REPORT INFORMATION
  Report Type: 
  Country: None (occurrence: None)
  Receive Date: 20060823
  Receipt Date: 20060823
  Transmission Date: 20061208
  Serious: Yes (Hospitalization)
  Sender: FDA-Public Use
  Company Number: None

PATIENT
  Sex: Female

DRUGS (3)
  1. CIPROFLOXACIN [Suspect]
     Indication: URINARY TRACT INFECTION
     Dosage: 400 MG - 500 MG Q12 BID IV -} PO
     Route: 042
     Dates: start: 20060316, end: 20060321
  2. ENOXAPARIN SODIUM [Suspect]
     Indication: DEEP VEIN THROMBOSIS
     Dosage: 60 MG BID SQ
     Route: 058
     Dates: start: 20060316
  3. ENOXAPARIN SODIUM [Suspect]
     Indication: INTERNATIONAL NORMALISED RATIO DECREASED
     Dosage: 60 MG BID SQ
     Route: 058
     Dates: start: 20060316

REACTIONS (2)
  - PANCYTOPENIA [None]
  - THROMBOCYTOPENIA [None]
